FAERS Safety Report 4905346-6 (Version None)
Quarter: 2006Q1

REPORT INFORMATION
  Report Type: 
  Country: None (occurrence: None)
  Receive Date: 20060207
  Receipt Date: 20060207
  Transmission Date: 20060701
  Serious: Yes (Life-Threatening, Hospitalization)
  Sender: FDA-Public Use
  Company Number: None

PATIENT
  Age: 71 Year
  Sex: Female
  Weight: 54.4316 kg

DRUGS (2)
  1. MICARDIS [Suspect]
     Indication: HYPERTENSION
     Dosage: 40 MG  DAILY  PO
     Route: 048
     Dates: start: 20010101, end: 20060128
  2. HYDROCHLOROTHIAZIDEL [Concomitant]

REACTIONS (12)
  - ANXIETY [None]
  - DIZZINESS [None]
  - FALL [None]
  - FEELING ABNORMAL [None]
  - FEELING HOT [None]
  - FLUSHING [None]
  - HYPOTENSION [None]
  - HYPOTONIA [None]
  - INCOHERENT [None]
  - NAUSEA [None]
  - PULSE PRESSURE DECREASED [None]
  - VASODILATATION [None]
